FAERS Safety Report 10936308 (Version 1)
Quarter: 2015Q1

REPORT INFORMATION
  Report Type: Spontaneous
  Country: US (occurrence: None)
  Receive Date: 20150320
  Receipt Date: 20150320
  Transmission Date: 20150721
  Serious: No
  Sender: FDA-Public Use
  Company Number: None

PATIENT
  Age: 22 Year
  Sex: Female
  Weight: 56.7 kg

DRUGS (2)
  1. METHYLPHENIDATE CD [Suspect]
     Active Substance: METHYLPHENIDATE HYDROCHLORIDE
     Indication: ATTENTION DEFICIT/HYPERACTIVITY DISORDER
     Dosage: 1 PILL AS NEEDED TAKEN BY MOUTH
     Route: 048
  2. AVENGERS MULTIVITAMIN GUMMIES [Concomitant]

REACTIONS (3)
  - Hyperhidrosis [None]
  - Drug effect variable [None]
  - Heart rate increased [None]

NARRATIVE: CASE EVENT DATE: 20150318
